FAERS Safety Report 9101917 (Version 1)
Quarter: 2013Q1

REPORT INFORMATION
  Report Type: Spontaneous
  Country: US (occurrence: None)
  Receive Date: 20130220
  Receipt Date: 20130220
  Transmission Date: 20140127
  Serious: No
  Sender: FDA-Public Use
  Company Number: None

PATIENT
  Age: 73 Year
  Sex: Female

DRUGS (1)
  1. JAKAFI [Suspect]
     Dosage: 10MG   BID   PO?FROM  08/21/2012  TO  CURRENT
     Route: 048
     Dates: start: 20120821

REACTIONS (1)
  - Vaginal infection [None]
